FAERS Safety Report 8300465-9 (Version None)
Quarter: 2012Q2

REPORT INFORMATION
  Report Type: 
  Country: None (occurrence: None)
  Receive Date: 20120417
  Receipt Date: 20120406
  Transmission Date: 20120825
  Serious: Yes (Death)
  Sender: FDA-Public Use
  Company Number: 2012CP000034

PATIENT
  Sex: Female

DRUGS (1)
  1. OFIRMEV [Suspect]
     Dosage: ;IV
     Route: 042

REACTIONS (2)
  - SEPSIS [None]
  - MULTI-ORGAN FAILURE [None]
